FAERS Safety Report 24648236 (Version 4)
Quarter: 2025Q1

REPORT INFORMATION
  Report Type: Spontaneous
  Country: US (occurrence: US)
  Receive Date: 20241121
  Receipt Date: 20250214
  Transmission Date: 20250408
  Serious: No
  Sender: ROCHE
  Company Number: US-ROCHE-10000135005

PATIENT
  Age: 34 Year
  Sex: Male

DRUGS (2)
  1. HEMLIBRA [Suspect]
     Active Substance: EMICIZUMAB-KXWH
     Indication: Factor VIII deficiency
     Dosage: UNKNOWN DOSES WERE INFUSED ON (15/NOV/2024 AND 16/NOV/2024).?STRENGTH: 150MG/ML
     Route: 058
     Dates: start: 202202
  2. ADVATE [Concomitant]
     Active Substance: ANTIHEMOPHILIC FACTOR, HUMAN RECOMBINANT

REACTIONS (3)
  - Haemorrhage [Unknown]
  - Haemorrhage [Unknown]
  - Injury [Unknown]

NARRATIVE: CASE EVENT DATE: 20250201
